FAERS Safety Report 10017101 (Version 1)
Quarter: 2014Q1

REPORT INFORMATION
  Report Type: Report from Study
  Country: CA (occurrence: CA)
  Receive Date: 20140318
  Receipt Date: 20140318
  Transmission Date: 20141002
  Serious: Yes (Death, Hospitalization, Other)
  Sender: FDA-Public Use
  Company Number: CA-JNJFOC-20140308097

PATIENT
  Sex: Female

DRUGS (5)
  1. TYLENOL [Suspect]
     Route: 065
  2. TYLENOL [Suspect]
     Indication: PRODUCT USED FOR UNKNOWN INDICATION
     Route: 065
     Dates: start: 19830204, end: 19830218
  3. ATASOL [Suspect]
     Indication: PRODUCT USED FOR UNKNOWN INDICATION
     Route: 065
     Dates: start: 19830204, end: 19830218
  4. CODEINE [Concomitant]
     Indication: PRODUCT USED FOR UNKNOWN INDICATION
     Route: 065
  5. CAFFEINE [Concomitant]
     Indication: PRODUCT USED FOR UNKNOWN INDICATION
     Route: 065

REACTIONS (9)
  - Toxicity to various agents [Fatal]
  - Hepatic failure [Fatal]
  - Hepatic encephalopathy [Fatal]
  - Gastrointestinal haemorrhage [Fatal]
  - Pancreatitis acute [Fatal]
  - Goitre [Fatal]
  - Brain oedema [Fatal]
  - Hepatic necrosis [Fatal]
  - Overdose [Unknown]
